FAERS Safety Report 5900908-1 (Version None)
Quarter: 2008Q3

REPORT INFORMATION
  Report Type: 
  Country: None (occurrence: None)
  Receive Date: 20080929
  Receipt Date: 20080922
  Transmission Date: 20090109
  Serious: Yes (Hospitalization)
  Sender: FDA-Public Use
  Company Number: PHHY2008FR22346

PATIENT
  Sex: Male

DRUGS (1)
  1. ACLASTA [Suspect]
     Indication: SPINAL CORD COMPRESSION
     Dosage: 5 MG
     Route: 042

REACTIONS (4)
  - CONFUSIONAL STATE [None]
  - CONVULSION [None]
  - HYPOCALCAEMIA [None]
  - VITAMIN D DEFICIENCY [None]
